FAERS Safety Report 20820150 (Version 2)
Quarter: 2022Q4

REPORT INFORMATION
  Report Type: Spontaneous
  Country: US (occurrence: US)
  Receive Date: 20220512
  Receipt Date: 20221109
  Transmission Date: 20230112
  Serious: Yes (Other)
  Sender: FDA-Public Use
  Company Number: US-PFIZER INC-202200213702

PATIENT
  Age: 64 Year
  Sex: Female

DRUGS (1)
  1. XELJANZ [Suspect]
     Active Substance: TOFACITINIB CITRATE
     Indication: Rheumatoid arthritis
     Dosage: 5 MG, 2X/DAY
     Route: 048
     Dates: start: 202111

REACTIONS (9)
  - Depressed mood [Unknown]
  - Product dose omission issue [Unknown]
  - Discouragement [Recovered/Resolved]
  - Memory impairment [Unknown]
  - Pain [Unknown]
  - Oropharyngeal pain [Unknown]
  - Cough [Unknown]
  - Headache [Unknown]
  - COVID-19 [Unknown]

NARRATIVE: CASE EVENT DATE: 20221101
